FAERS Safety Report 4338406-1 (Version None)
Quarter: 2004Q2

REPORT INFORMATION
  Report Type: 
  Country: None (occurrence: None)
  Receive Date: 20040407
  Receipt Date: 20040324
  Transmission Date: 20050107
  Serious: Yes (Hospitalization, Other)
  Sender: FDA-Public Use
  Company Number: SP-200001192

PATIENT
  Age: 61 Year
  Sex: Male

DRUGS (5)
  1. REMICADE [Suspect]
     Indication: RHEUMATOID ARTHRITIS
     Dosage: 3 MG/KG, INTRAVENOUS DRIP
     Route: 041
     Dates: start: 20000201
  2. METHOTREXATE [Concomitant]
  3. NSAIDS (NOS) (NSAID'S) [Concomitant]
  4. GASTRIC PROTECTORS (ANTACIDS) [Concomitant]
  5. DEFLAZACORT (DEFLAZACORT) [Concomitant]

REACTIONS (7)
  - ASTHENIA [None]
  - CHEST X-RAY ABNORMAL [None]
  - HEPATIC ENZYME INCREASED [None]
  - HEPATOSPLENOMEGALY [None]
  - SPLEEN DISORDER [None]
  - TUBERCULOSIS [None]
  - TUBERCULOSIS LIVER [None]
